FAERS Safety Report 10168010 (Version 1)
Quarter: 2014Q2

REPORT INFORMATION
  Report Type: Spontaneous
  Country: US (occurrence: US)
  Receive Date: 20140512
  Receipt Date: 20140512
  Transmission Date: 20141212
  Serious: Yes (Hospitalization)
  Sender: FDA-Public Use
  Company Number: US-BAYER-2014-068118

PATIENT
  Age: 31 Year
  Sex: Female
  Weight: 92.06 kg

DRUGS (12)
  1. YAZ [Suspect]
     Dosage: UNK
     Dates: start: 200501, end: 200601
  2. YASMIN [Suspect]
     Dosage: UNK
     Dates: start: 200501, end: 200601
  3. OCELLA [Suspect]
     Dosage: UNK
     Dates: start: 200501, end: 200601
  4. BEYAZ [Suspect]
     Dosage: UNK
     Dates: start: 200501, end: 200601
  5. GIANVI [Suspect]
     Dosage: UNK
     Dates: start: 200501, end: 200601
  6. SAFYRAL [Suspect]
     Dosage: UNK
     Dates: start: 200501, end: 200601
  7. DOXYCYCLINE [Concomitant]
     Indication: ACNE
     Dosage: 100 MG, UNK
  8. RETIN-A [Concomitant]
     Indication: ACNE
     Dosage: 0.05 %, UNK
  9. CLINDAMYCIN [Concomitant]
     Indication: ACNE
     Dosage: 1 %, UNK
  10. MARCAINE [Concomitant]
  11. LORAZEPAM [Concomitant]
  12. OXYCODONE [Concomitant]

REACTIONS (2)
  - Deep vein thrombosis [Recovered/Resolved]
  - Injury [Recovered/Resolved]
